FAERS Safety Report 23670467 (Version 1)
Quarter: 2024Q1

REPORT INFORMATION
  Report Type: Spontaneous
  Country: US (occurrence: US)
  Receive Date: 20240326
  Receipt Date: 20240326
  Transmission Date: 20240410
  Serious: No
  Sender: FDA-Public Use
  Company Number: US-BoehringerIngelheim-2024-BI-016874

PATIENT
  Age: 78 Year
  Sex: Female

DRUGS (1)
  1. ATROVENT [Suspect]
     Active Substance: IPRATROPIUM BROMIDE
     Indication: Cough
     Dosage: 2 PUFFS
     Dates: start: 20240320

REACTIONS (3)
  - Productive cough [Not Recovered/Not Resolved]
  - Intentional product use issue [Unknown]
  - Mucosal discolouration [Unknown]

NARRATIVE: CASE EVENT DATE: 20240321
